FAERS Safety Report 10679102 (Version 5)
Quarter: 2015Q2

REPORT INFORMATION
  Report Type: Spontaneous
  Country: US (occurrence: US)
  Receive Date: 20141229
  Receipt Date: 20150414
  Transmission Date: 20150821
  Serious: No
  Sender: FDA-Public Use
  Company Number: US-PFIZER INC-2014352452

PATIENT
  Age: 55 Year
  Sex: Female

DRUGS (4)
  1. TYLENOL WITH CODEINE [Concomitant]
     Active Substance: ACETAMINOPHEN\CODEINE PHOSPHATE
     Dosage: UNK
  2. ZOFRAN [Concomitant]
     Active Substance: ONDANSETRON HYDROCHLORIDE
     Dosage: UNK
  3. SUTENT [Suspect]
     Active Substance: SUNITINIB MALATE
     Indication: THYMOMA MALIGNANT
     Dosage: 37.5 MG, DAILY
     Route: 048
     Dates: start: 20141014, end: 2014
  4. SUTENT [Suspect]
     Active Substance: SUNITINIB MALATE
     Dosage: 37.5 MG, DAILY
     Route: 048
     Dates: start: 20141112

REACTIONS (9)
  - Hyperkeratosis [Unknown]
  - Product use issue [Unknown]
  - Chromaturia [Unknown]
  - Blister [Not Recovered/Not Resolved]
  - Diarrhoea [Unknown]
  - Joint range of motion decreased [Unknown]
  - Skin discolouration [Unknown]
  - Bedridden [Unknown]
  - Back pain [Recovering/Resolving]

NARRATIVE: CASE EVENT DATE: 20141218
